FAERS Safety Report 4601169-6 (Version None)
Quarter: 2005Q1

REPORT INFORMATION
  Report Type: 
  Country: None (occurrence: None)
  Receive Date: 20050308
  Receipt Date: 20041110
  Transmission Date: 20050727
  Serious: Yes (Death, Hospitalization, Other)
  Sender: FDA-Public Use
  Company Number: 200414244FR

PATIENT
  Age: 69 Year
  Sex: Female
  Weight: 56 kg

DRUGS (2)
  1. ARAVA [Suspect]
     Indication: RHEUMATOID ARTHRITIS
     Route: 048
     Dates: start: 20040301, end: 20040907
  2. CORTANCYL [Concomitant]
     Indication: RHEUMATOID ARTHRITIS
     Route: 048

REACTIONS (40)
  - ABDOMINAL PAIN UPPER [None]
  - ALANINE AMINOTRANSFERASE INCREASED [None]
  - ARTHRALGIA [None]
  - ASCITES [None]
  - ASPARTATE AMINOTRANSFERASE INCREASED [None]
  - BLOOD BILIRUBIN INCREASED [None]
  - BLOOD IRON DECREASED [None]
  - BONE MARROW DISORDER [None]
  - C-REACTIVE PROTEIN INCREASED [None]
  - CHILLS [None]
  - CONJUNCTIVAL DISORDER [None]
  - CREPITATIONS [None]
  - CULTURE URINE POSITIVE [None]
  - DIARRHOEA [None]
  - DOUGLAS' POUCH EFFUSION [None]
  - ENTEROCOCCAL INFECTION [None]
  - FUNGAL INFECTION [None]
  - GAMMA-GLUTAMYLTRANSFERASE INCREASED [None]
  - GASTROINTESTINAL DISORDER [None]
  - HEPATIC CANCER METASTATIC [None]
  - HEPATIC LESION [None]
  - HEPATIC TRAUMA [None]
  - HYPERHIDROSIS [None]
  - JAUNDICE [None]
  - KLEBSIELLA INFECTION [None]
  - LIVER ABSCESS [None]
  - LYMPHADENOPATHY [None]
  - MEDIASTINAL DISORDER [None]
  - METASTASES TO LIVER [None]
  - PALLOR [None]
  - PANCYTOPENIA [None]
  - PERICARDIAL EFFUSION [None]
  - PERITONEAL CARCINOMA [None]
  - PLEURAL EFFUSION [None]
  - PLEURISY [None]
  - PURULENCE [None]
  - PYREXIA [None]
  - RED BLOOD CELL SEDIMENTATION RATE INCREASED [None]
  - RHEUMATOID ARTHRITIS [None]
  - TUBERCULOSIS [None]
